FAERS Safety Report 18628897 (Version 1)
Quarter: 2020Q4

REPORT INFORMATION
  Report Type: Spontaneous
  Country: US (occurrence: US)
  Receive Date: 20201216
  Receipt Date: 20201216
  Transmission Date: 20210114
  Serious: Yes (Life-Threatening, Hospitalization)
  Sender: FDA-Public Use
  Company Number: None

PATIENT
  Age: 72 Year
  Sex: Male
  Weight: 207 kg

DRUGS (2)
  1. NIVOLUMAB (NIVOLUMAB 10MG/ML INJ, SOLN) [Suspect]
     Active Substance: NIVOLUMAB
     Indication: CILIARY BODY MELANOMA
     Route: 042
     Dates: start: 20200618, end: 20200716
  2. IPILIMUMAB [Suspect]
     Active Substance: IPILIMUMAB
     Indication: CILIARY BODY MELANOMA
     Route: 042
     Dates: start: 20200618, end: 20200716

REACTIONS (8)
  - Pyrexia [None]
  - Immune-mediated hepatitis [None]
  - Malaise [None]
  - Hepatic enzyme increased [None]
  - Ciliary body melanoma [None]
  - Hepatotoxicity [None]
  - Encephalopathy [None]
  - Transaminases increased [None]

NARRATIVE: CASE EVENT DATE: 20200820
